FAERS Safety Report 25048750 (Version 1)
Quarter: 2025Q1

REPORT INFORMATION
  Report Type: Spontaneous
  Country: US (occurrence: US)
  Receive Date: 20250307
  Receipt Date: 20250307
  Transmission Date: 20250408
  Serious: No
  Sender: SAMSUNG BIOEPIS
  Company Number: US-SAMSUNG BIOEPIS-SB-2024-10993

PATIENT
  Age: 72 Year
  Sex: Female
  Weight: 79.83 kg

DRUGS (1)
  1. HADLIMA [Suspect]
     Active Substance: ADALIMUMAB-BWWD
     Indication: Rheumatoid arthritis
     Route: 058
     Dates: start: 202403

REACTIONS (2)
  - Injection site pain [Unknown]
  - Device malfunction [Unknown]

NARRATIVE: CASE EVENT DATE: 20240405
